FAERS Safety Report 5144124-2 (Version None)
Quarter: 2006Q4

REPORT INFORMATION
  Report Type: 
  Country: None (occurrence: None)
  Receive Date: 20061106
  Receipt Date: 20061025
  Transmission Date: 20070319
  Serious: Yes (Other)
  Sender: FDA-Public Use
  Company Number: PHBS2006BR16777

PATIENT
  Age: 32 Year
  Sex: Female

DRUGS (2)
  1. TEGRETOL [Suspect]
     Route: 048
  2. TEGRETOL [Suspect]
     Dosage: 200 MG, BID
     Route: 048

REACTIONS (1)
  - PREMATURE MENOPAUSE [None]
